FAERS Safety Report 6284071-6 (Version None)
Quarter: 2009Q3

REPORT INFORMATION
  Report Type: 
  Country: None (occurrence: None)
  Receive Date: 20090722
  Receipt Date: 20090709
  Transmission Date: 20100115
  Serious: Yes (Hospitalization)
  Sender: FDA-Public Use
  Company Number: ALA_00329_2009

PATIENT
  Sex: Male

DRUGS (8)
  1. REGLAN [Suspect]
     Indication: DRUG USE FOR UNKNOWN INDICATION
     Dosage: (1 DF QD ORAL)
     Route: 048
     Dates: start: 20080101, end: 20090101
  2. NORVASC [Concomitant]
  3. TRIAMTERENE AND HYDROCHLOROTHIAZIDE [Concomitant]
  4. PRILOSEC [Concomitant]
  5. LIPITOR [Concomitant]
  6. HYTRIN [Concomitant]
  7. ASPIRIN [Concomitant]
  8. AVODART [Concomitant]

REACTIONS (4)
  - CONDITION AGGRAVATED [None]
  - DIVERTICULITIS [None]
  - DRUG INEFFECTIVE [None]
  - TARDIVE DYSKINESIA [None]
